FAERS Safety Report 13087997 (Version 1)
Quarter: 2017Q1

REPORT INFORMATION
  Report Type: Spontaneous
  Country: CH (occurrence: CH)
  Receive Date: 20170105
  Receipt Date: 20170105
  Transmission Date: 20170428
  Serious: Yes (Life-Threatening, Hospitalization)
  Sender: FDA-Public Use
  Company Number: CH-SA-2016SA237047

PATIENT
  Age: 43 Year
  Sex: Male
  Weight: 115 kg

DRUGS (13)
  1. MARCOUMAR [Interacting]
     Active Substance: PHENPROCOUMON
     Route: 048
  2. PANTOZOL [Concomitant]
     Active Substance: PANTOPRAZOLE SODIUM
     Route: 048
  3. MAGNESIUM DIASPORAL (MAGNESIUM CITRATE) [Interacting]
     Active Substance: MAGNESIUM CITRATE
     Route: 065
  4. LYRICA [Concomitant]
     Active Substance: PREGABALIN
     Route: 048
  5. PLAVIX [Suspect]
     Active Substance: CLOPIDOGREL BISULFATE
     Route: 065
  6. TRITTICO [Interacting]
     Active Substance: TRAZODONE HYDROCHLORIDE
     Route: 048
  7. MARCOUMAR [Interacting]
     Active Substance: PHENPROCOUMON
     Route: 048
     Dates: start: 201609
  8. TORASEMID [Concomitant]
     Active Substance: TORSEMIDE
     Route: 048
  9. KCL-RETARD HAUSMANN [Concomitant]
  10. AMIODARON [Interacting]
     Active Substance: AMIODARONE
     Route: 048
  11. TEMESTA [Concomitant]
     Active Substance: LORAZEPAM
     Route: 048
  12. MARCOUMAR [Interacting]
     Active Substance: PHENPROCOUMON
     Dosage: TABLETS 3 MG TARGET 2.3-2.8
     Route: 048
  13. ALDACTONE [Concomitant]
     Active Substance: SPIRONOLACTONE
     Route: 048

REACTIONS (4)
  - Headache [Recovered/Resolved]
  - Hypoaesthesia [Recovered/Resolved]
  - Subarachnoid haemorrhage [Recovered/Resolved]
  - International normalised ratio increased [None]

NARRATIVE: CASE EVENT DATE: 20160925
